FAERS Safety Report 9687141 (Version 1)
Quarter: 2013Q4

REPORT INFORMATION
  Report Type: Spontaneous
  Country: US (occurrence: US)
  Receive Date: 20131113
  Receipt Date: 20131113
  Transmission Date: 20140711
  Serious: Yes (Hospitalization, Other)
  Sender: FDA-Public Use
  Company Number: US-GILEAD-2013-0087143

PATIENT
  Sex: Male

DRUGS (3)
  1. LETAIRIS [Suspect]
     Indication: PRODUCT USED FOR UNKNOWN INDICATION
     Dosage: 5 MG, QD
     Route: 048
     Dates: start: 20120912
  2. REMODULIN [Concomitant]
  3. REVATIO [Concomitant]

REACTIONS (4)
  - Oesophageal carcinoma [Unknown]
  - Pneumonia [Unknown]
  - Unevaluable event [Unknown]
  - Epistaxis [Unknown]
